FAERS Safety Report 7760016-4 (Version None)
Quarter: 2011Q3

REPORT INFORMATION
  Report Type: 
  Country: None (occurrence: None)
  Receive Date: 20110919
  Receipt Date: 20110908
  Transmission Date: 20111222
  Serious: Yes (Other)
  Sender: FDA-Public Use
  Company Number: CA-BAYER-2011-083774

PATIENT
  Sex: Female

DRUGS (1)
  1. MIRENA [Suspect]
     Indication: CONTRACEPTION
     Route: 015
     Dates: start: 20090101, end: 20110826

REACTIONS (4)
  - DEVICE DISLOCATION [None]
  - PROCEDURAL PAIN [None]
  - DEVICE BREAKAGE [None]
  - DEVICE EXPULSION [None]
